FAERS Safety Report 8267778-0 (Version None)
Quarter: 2012Q2

REPORT INFORMATION
  Report Type: 
  Country: None (occurrence: None)
  Receive Date: 20120404
  Receipt Date: 20120321
  Transmission Date: 20120825
  Serious: Yes (Death, Other)
  Sender: FDA-Public Use
  Company Number: 1212015

PATIENT
  Age: 57 Year
  Sex: Male
  Weight: 31.2982 kg

DRUGS (3)
  1. OXALIPLATIN [Suspect]
     Indication: COLON CANCER
     Dosage: 235 MG MILLIGRAM(S), 3 WEEK, INTRAVENOUS
     Route: 042
     Dates: start: 20120117, end: 20120117
  2. XELODA [Suspect]
     Indication: COLON CANCER
     Dosage: 1800 MG MILLIGRAMS, 3 WEEK, UNKNOWN
     Dates: start: 20120117, end: 20120123
  3. DOMPERIDONE [Concomitant]

REACTIONS (10)
  - PLATELET COUNT DECREASED [None]
  - MALAISE [None]
  - BONE MARROW DISORDER [None]
  - NAUSEA [None]
  - BLOOD ALBUMIN DECREASED [None]
  - NEUTROPENIA [None]
  - DIHYDROPYRIMIDINE DEHYDROGENASE DEFICIENCY [None]
  - DIARRHOEA [None]
  - MUCOSAL INFLAMMATION [None]
  - HAEMOGLOBIN DECREASED [None]
